FAERS Safety Report 23856765 (Version 1)
Quarter: 2024Q2

REPORT INFORMATION
  Report Type: Spontaneous
  Country: US (occurrence: US)
  Receive Date: 20240515
  Receipt Date: 20240515
  Transmission Date: 20240716
  Serious: No
  Sender: FDA-Public Use
  Company Number: US-TAKEDA-2024TUS047810

PATIENT
  Sex: Female
  Weight: 53 kg

DRUGS (24)
  1. VYVANSE [Suspect]
     Active Substance: LISDEXAMFETAMINE DIMESYLATE
     Indication: Attention deficit hyperactivity disorder
     Dosage: 50 MILLIGRAM, QD
     Route: 065
     Dates: end: 202309
  2. LISDEXAMFETAMINE DIMESYLATE [Suspect]
     Active Substance: LISDEXAMFETAMINE DIMESYLATE
     Indication: Attention deficit hyperactivity disorder
     Dosage: UNK
     Route: 065
  3. TRINTELLIX [Suspect]
     Active Substance: VORTIOXETINE HYDROBROMIDE
     Indication: Depression
     Dosage: 5 MILLIGRAM, QD
     Route: 065
  4. TRINTELLIX [Suspect]
     Active Substance: VORTIOXETINE HYDROBROMIDE
     Dosage: 10 MILLIGRAM, QD
     Route: 065
  5. GABAPENTIN [Concomitant]
     Active Substance: GABAPENTIN
     Dosage: 1 DOSAGE FORM, TID
     Route: 065
  6. DULOXETINE [Concomitant]
     Active Substance: DULOXETINE
     Dosage: 60 MILLIGRAM
     Route: 065
  7. DULOXETINE [Concomitant]
     Active Substance: DULOXETINE
     Dosage: 30 MILLIGRAM
     Route: 065
  8. VITAMIN C [Concomitant]
     Active Substance: ASCORBIC ACID
     Dosage: UNK
     Route: 065
  9. VITAMIN B3 [Concomitant]
     Active Substance: NIACIN
     Dosage: 5000 INTERNATIONAL UNIT
     Route: 065
  10. ZINC [Concomitant]
     Active Substance: PYRITHIONE ZINC\ZINC\ZINC CHLORIDE
  11. PLAQUENIL [Concomitant]
     Active Substance: HYDROXYCHLOROQUINE SULFATE
     Dosage: UNK
     Route: 065
  12. CEVIMELINE [Concomitant]
     Active Substance: CEVIMELINE
     Dosage: UNK
     Route: 065
  13. BUPROPION [Concomitant]
     Active Substance: BUPROPION
     Dosage: UNK
     Route: 065
  14. RESTASIS [Concomitant]
     Active Substance: CYCLOSPORINE
     Route: 065
  15. BETAMETHASONE DIPROPIONATE [Concomitant]
     Active Substance: BETAMETHASONE DIPROPIONATE
     Dosage: UNK
     Route: 065
  16. Dulcolax [Concomitant]
     Dosage: UNK
     Route: 065
  17. VITAMIN B12 [Concomitant]
     Active Substance: CYANOCOBALAMIN
     Dosage: UNK
     Route: 065
  18. PRAZOSIN [Concomitant]
     Active Substance: PRAZOSIN
     Dosage: UNK
     Route: 065
  19. ESTRADIOL [Concomitant]
     Active Substance: ESTRADIOL
     Dosage: UNK
     Route: 065
  20. JUBLIA [Concomitant]
     Active Substance: EFINACONAZOLE
     Dosage: UNK
     Route: 065
  21. MIRALAX [Concomitant]
     Active Substance: POLYETHYLENE GLYCOL 3350
     Dosage: UNK
     Route: 065
  22. MYRBETRIQ [Concomitant]
     Active Substance: MIRABEGRON
     Dosage: UNK
     Route: 065
  23. MAGNESIUM [Concomitant]
     Active Substance: MAGNESIUM
     Dosage: UNK
     Route: 065
  24. ATOMOXETINE [Concomitant]
     Active Substance: ATOMOXETINE\ATOMOXETINE HYDROCHLORIDE
     Dosage: UNK
     Route: 065

REACTIONS (3)
  - Product availability issue [Not Recovered/Not Resolved]
  - Insurance issue [Not Recovered/Not Resolved]
  - Product use issue [Not Recovered/Not Resolved]

NARRATIVE: CASE EVENT DATE: 20230101
